FAERS Safety Report 10184685 (Version 2)
Quarter: 2014Q3

REPORT INFORMATION
  Report Type: Spontaneous
  Country: US (occurrence: None)
  Receive Date: 20140519
  Receipt Date: 20140808
  Transmission Date: 20150326
  Serious: Yes (Hospitalization)
  Sender: FDA-Public Use
  Company Number: KAD201405-000503

PATIENT
  Age: 45 Year
  Sex: Male

DRUGS (7)
  1. RIBASPHERE RIBAPAK [Suspect]
     Active Substance: RIBAVIRIN
     Indication: HEPATITIS C
     Dosage: 600 MG IN AM AND PM (1200 MG DAILY)
     Route: 048
     Dates: start: 20140423
  2. SOVALDI [Suspect]
     Active Substance: SOFOSBUVIR
     Dates: start: 20140423
  3. SOVALDI [Suspect]
     Active Substance: SOFOSBUVIR
     Dates: start: 20140423
  4. CIPROFLOXACIN. [Concomitant]
     Active Substance: CIPROFLOXACIN
  5. PHENAZOPYRIDINE (PHENAZOPYRIDINE) [Concomitant]
     Active Substance: PHENAZOPYRIDINE
  6. TAMSULOSIN [Concomitant]
     Active Substance: TAMSULOSIN
  7. CODEINE [Concomitant]
     Active Substance: CODEINE

REACTIONS (2)
  - Nephrolithiasis [None]
  - Abdominal discomfort [None]

NARRATIVE: CASE EVENT DATE: 20140503
